FAERS Safety Report 13550767 (Version 1)
Quarter: 2017Q2

REPORT INFORMATION
  Report Type: Spontaneous
  Country: IT (occurrence: IT)
  Receive Date: 20170516
  Receipt Date: 20170516
  Transmission Date: 20170830
  Serious: Yes (Other)
  Sender: FDA-Public Use
  Company Number: IT-JNJFOC-20170513961

PATIENT
  Sex: Male

DRUGS (2)
  1. PREDNISONE. [Concomitant]
     Active Substance: PREDNISONE
     Indication: HORMONE-REFRACTORY PROSTATE CANCER
     Route: 065
  2. ABIRATERONE ACETATE [Suspect]
     Active Substance: ABIRATERONE ACETATE
     Indication: HORMONE-REFRACTORY PROSTATE CANCER
     Dosage: ALSO REPORTED AS 1 G DAILY
     Route: 048

REACTIONS (5)
  - Acute coronary syndrome [Unknown]
  - Sinus bradycardia [Unknown]
  - Pulmonary oedema [Unknown]
  - Syncope [Unknown]
  - Cardiac failure [Unknown]
